FAERS Safety Report 6061224-3 (Version None)
Quarter: 2009Q1

REPORT INFORMATION
  Report Type: 
  Country: None (occurrence: None)
  Receive Date: 20090202
  Receipt Date: 20090127
  Transmission Date: 20090719
  Serious: Yes (Death, Hospitalization)
  Sender: FDA-Public Use
  Company Number: JP-BAYER-200810972BYL

PATIENT
  Age: 64 Year
  Sex: Female
  Weight: 44 kg

DRUGS (12)
  1. NEXAVAR [Suspect]
     Indication: RENAL CELL CARCINOMA STAGE IV
     Dosage: TOTAL DAILY DOSE: 800 MG  UNIT DOSE: 200 MG
     Route: 048
     Dates: start: 20080516, end: 20080521
  2. NEXAVAR [Suspect]
     Dosage: TOTAL DAILY DOSE: 400 MG  UNIT DOSE: 200 MG
     Route: 048
     Dates: start: 20080603, end: 20080612
  3. PROLEUKIN [Concomitant]
     Indication: RENAL CELL CARCINOMA
     Route: 065
  4. GLYCYRON [Concomitant]
     Indication: DRUG USE FOR UNKNOWN INDICATION
     Route: 048
  5. GAMOFA D [Concomitant]
     Indication: DRUG USE FOR UNKNOWN INDICATION
     Route: 048
  6. ALDACTONE [Concomitant]
     Route: 048
  7. PRIMPERAN TAB [Concomitant]
  8. LASIX [Concomitant]
  9. ARGAMATE [Concomitant]
     Route: 048
  10. LOXOPROFEN [Concomitant]
     Route: 048
  11. FERROMIA [Concomitant]
     Route: 048
  12. ALLELOCK [Concomitant]
     Route: 048

REACTIONS (2)
  - DEATH [None]
  - OESOPHAGEAL VARICES HAEMORRHAGE [None]
